FAERS Safety Report 14662436 (Version 1)
Quarter: 2018Q1

REPORT INFORMATION
  Report Type: Report from Study
  Country: HU (occurrence: HU)
  Receive Date: 20180321
  Receipt Date: 20180321
  Transmission Date: 20180509
  Serious: Yes (Life-Threatening, Hospitalization, Other)
  Sender: FDA-Public Use
  Company Number: HU-AXELLIA-001470

PATIENT
  Age: 31 Year
  Sex: Male

DRUGS (6)
  1. TOBRAMYCIN. [Suspect]
     Active Substance: TOBRAMYCIN
     Indication: PNEUMONIA
  2. LINEZOLID. [Concomitant]
     Active Substance: LINEZOLID
     Indication: ENDOCARDITIS STAPHYLOCOCCAL
  3. CEFTAZIDIME/CEFTAZIDIME PENTAHYDRATE [Concomitant]
     Indication: PNEUMONIA
  4. VANCOMYCIN [Suspect]
     Active Substance: VANCOMYCIN
     Indication: ENDOCARDITIS STAPHYLOCOCCAL
     Dosage: DOSE 1 (UNIT UNKNOWN)
     Route: 042
  5. RIFAMPICIN [Suspect]
     Active Substance: RIFAMPIN
     Indication: PNEUMONIA STAPHYLOCOCCAL
     Dosage: 300 TO 600 MG, DAILY
     Route: 048
  6. METRONIDAZOLE. [Concomitant]
     Active Substance: METRONIDAZOLE
     Indication: ENDOCARDITIS STAPHYLOCOCCAL

REACTIONS (1)
  - Drug ineffective [Unknown]
